FAERS Safety Report 24801911 (Version 5)
Quarter: 2025Q3

REPORT INFORMATION
  Report Type: Report from Study
  Country: CO (occurrence: CO)
  Receive Date: 20250102
  Receipt Date: 20250801
  Transmission Date: 20251020
  Serious: Yes (Hospitalization, Other)
  Sender: TAKEDA
  Company Number: CO-TAKEDA-2021TUS031198

PATIENT
  Age: 82 Year
  Sex: Female
  Weight: 53.96 kg

DRUGS (5)
  1. VELAGLUCERASE ALFA [Suspect]
     Active Substance: VELAGLUCERASE ALFA
     Indication: Gaucher^s disease
  2. VELAGLUCERASE ALFA [Suspect]
     Active Substance: VELAGLUCERASE ALFA
     Indication: Niemann-Pick disease
     Dosage: 3200 INTERNATIONAL UNIT, Q2WEEKS
     Dates: start: 20130312
  3. VELAGLUCERASE ALFA [Suspect]
     Active Substance: VELAGLUCERASE ALFA
     Dosage: 3200 MILLIGRAM, 2/MONTH
  4. VELAGLUCERASE ALFA [Suspect]
     Active Substance: VELAGLUCERASE ALFA
     Dosage: 3200 INTERNATIONAL UNIT, 2/MONTH
  5. VELAGLUCERASE ALFA [Suspect]
     Active Substance: VELAGLUCERASE ALFA
     Dosage: 3200 INTERNATIONAL UNIT, Q2WEEKS

REACTIONS (18)
  - Diarrhoea [Recovered/Resolved]
  - Femur fracture [Unknown]
  - Fall [Unknown]
  - Hip fracture [Unknown]
  - Abdominal pain [Recovered/Resolved]
  - Viral infection [Unknown]
  - Treatment noncompliance [Unknown]
  - Hypophagia [Recovering/Resolving]
  - Insurance issue [Unknown]
  - Product availability issue [Unknown]
  - Inappropriate schedule of product administration [Unknown]
  - Product use issue [Unknown]
  - Product dose omission issue [Unknown]
  - Off label use [Unknown]
  - Vomiting [Recovered/Resolved]
  - Asthenia [Recovering/Resolving]
  - Product preparation error [Unknown]
  - Incorrect dose administered [Unknown]

NARRATIVE: CASE EVENT DATE: 20210511
